FAERS Safety Report 19719912 (Version 2)
Quarter: 2021Q3

REPORT INFORMATION
  Report Type: Spontaneous
  Country: PL (occurrence: PL)
  Receive Date: 20210818
  Receipt Date: 20210827
  Transmission Date: 20211014
  Serious: Yes (Hospitalization, Other)
  Sender: FDA-Public Use
  Company Number: PL-MYLANLABS-2021M1052075

PATIENT
  Age: 74 Year
  Sex: Male

DRUGS (10)
  1. ATORVASTATIN [Suspect]
     Active Substance: ATORVASTATIN
     Indication: PRODUCT USED FOR UNKNOWN INDICATION
     Dosage: 20 MG
     Route: 065
  2. RAMIPRIL. [Suspect]
     Active Substance: RAMIPRIL
     Indication: PRODUCT USED FOR UNKNOWN INDICATION
     Dosage: 2.5 MG
     Route: 065
  3. BISOPROLOL [Suspect]
     Active Substance: BISOPROLOL
     Indication: PRODUCT USED FOR UNKNOWN INDICATION
     Dosage: 2.5 MG
     Route: 065
  4. ACETYLSALICYLIC ACID [Suspect]
     Active Substance: ASPIRIN
     Indication: PRODUCT USED FOR UNKNOWN INDICATION
     Dosage: 75 MG
     Route: 065
  5. EPLERENONE. [Concomitant]
     Active Substance: EPLERENONE
     Indication: PRODUCT USED FOR UNKNOWN INDICATION
     Dosage: 25 MG, QD
     Route: 065
  6. POTASSIUM [Concomitant]
     Active Substance: POTASSIUM
     Indication: PRODUCT USED FOR UNKNOWN INDICATION
     Dosage: 2 DOSAGE FORM, QD (1 DF, BID)
     Route: 065
  7. FUROSEMIDE. [Concomitant]
     Active Substance: FUROSEMIDE
     Indication: PRODUCT USED FOR UNKNOWN INDICATION
     Dosage: 40 MG, BID (160?100 MG/24 H IN THE FIRST DAYS)
     Route: 042
  8. FUROSEMIDE. [Concomitant]
     Active Substance: FUROSEMIDE
     Dosage: 160 MILLIGRAM, QD (80 MG, BID 160?100 MG/24 H IN THE FIRST DAYS )
  9. POTASSIUM [Concomitant]
     Active Substance: POTASSIUM
     Dosage: 4 DOSAGE FORM, QD (2 DF, BID)
     Route: 065
  10. DOXAZOSIN [Concomitant]
     Active Substance: DOXAZOSIN MESYLATE
     Indication: PRODUCT USED FOR UNKNOWN INDICATION
     Dosage: 4 MG, QD
     Route: 065

REACTIONS (20)
  - Laboratory test abnormal [Unknown]
  - Rales [Unknown]
  - Dyspnoea exertional [Unknown]
  - Abnormal precordial movement [Unknown]
  - Ascites [Unknown]
  - Left ventricular hypertrophy [Unknown]
  - Ejection fraction decreased [Unknown]
  - Jugular vein distension [Unknown]
  - Oedema peripheral [Unknown]
  - Cardiac failure chronic [Unknown]
  - Mitral valve incompetence [Unknown]
  - Hepatomegaly [Unknown]
  - Cardiac failure [Unknown]
  - Gait inability [Unknown]
  - Cardiac murmur [Unknown]
  - Dyspnoea at rest [Unknown]
  - Orthopnoea [Unknown]
  - Peripheral swelling [Unknown]
  - Condition aggravated [Unknown]
  - Abdominal distension [Unknown]
